FAERS Safety Report 7010289 (Version 2)
Quarter: 2014Q1

REPORT INFORMATION
  Report Type: Spontaneous
  Country: US (occurrence: None)
  Receive Date: 20090526
  Receipt Date: 20140124
  Transmission Date: 20141002
  Serious: Yes (Other)
  Sender: FDA-Public Use
  Company Number: 2009S1004148

PATIENT
  Age: 62 Year
  Sex: Female

DRUGS (1)
  1. PHOSPHOSODA [Suspect]
     Indication: PRODUCT USED FOR UNKNOWN INDICATION
     Dosage: PO
     Route: 048

REACTIONS (7)
  - Cellulitis [None]
  - Palpitations [None]
  - Tachycardia [None]
  - Anaemia [None]
  - Fall [None]
  - Upper limb fracture [None]
  - Azotaemia [None]
